FAERS Safety Report 21183034 (Version 6)
Quarter: 2023Q1

REPORT INFORMATION
  Report Type: Report from Study
  Country: KR (occurrence: KR)
  Receive Date: 20220808
  Receipt Date: 20230119
  Transmission Date: 20230418
  Serious: Yes (Other)
  Sender: FDA-Public Use
  Company Number: KR-NOVARTISPH-NVSC2022KR177213

PATIENT
  Sex: Female
  Weight: 61.8 kg

DRUGS (30)
  1. RYDAPT [Suspect]
     Active Substance: MIDOSTAURIN
     Indication: Acute myeloid leukaemia
     Dosage: 50 MG, BID
     Route: 048
     Dates: start: 20220707, end: 20220721
  2. RYDAPT [Suspect]
     Active Substance: MIDOSTAURIN
     Dosage: 50 MG, BID
     Route: 048
     Dates: start: 20220816, end: 20220830
  3. DAUNORUBICIN HYDROCHLORIDE [Concomitant]
     Active Substance: DAUNORUBICIN HYDROCHLORIDE
     Indication: Acute myeloid leukaemia
     Dosage: 144 MG, QD
     Route: 042
     Dates: start: 20220629, end: 20220701
  4. CYTARABINE [Concomitant]
     Active Substance: CYTARABINE
     Indication: Acute myeloid leukaemia
     Dosage: 160 MG, QD
     Route: 042
     Dates: start: 20220629, end: 20220705
  5. CYTARABINE [Concomitant]
     Active Substance: CYTARABINE
     Dosage: 4.74 G (1G/20 ML)
     Route: 042
     Dates: start: 20220808, end: 20220812
  6. CYTARABINE [Concomitant]
     Active Substance: CYTARABINE
     Dosage: 4.74 G (1G/20 ML)
     Route: 042
     Dates: start: 20220810, end: 20220810
  7. CYTARABINE [Concomitant]
     Active Substance: CYTARABINE
     Dosage: 4.74 G (1G/20 ML)
     Route: 042
     Dates: start: 20220812, end: 20220812
  8. REBAMIPIDE [Concomitant]
     Active Substance: REBAMIPIDE
     Indication: Prophylaxis
     Dosage: 300 MG
     Route: 048
     Dates: start: 20220721
  9. REBAMIPIDE [Concomitant]
     Active Substance: REBAMIPIDE
     Dosage: 150 MG, BID
     Route: 048
  10. ALMAGEL-F [Concomitant]
     Indication: Prophylaxis
     Dosage: 45 ML, (SUSPENSION)
     Route: 048
     Dates: start: 20220721
  11. ALMAGEL-F [Concomitant]
     Dosage: 15 ML/PK, TID
     Route: 048
  12. NEXIUM [Concomitant]
     Active Substance: ESOMEPRAZOLE MAGNESIUM
     Indication: Prophylaxis
     Dosage: 40 MG
     Route: 048
     Dates: start: 20220624, end: 20220711
  13. NEXIUM [Concomitant]
     Active Substance: ESOMEPRAZOLE MAGNESIUM
     Dosage: 40 MG
     Route: 042
     Dates: start: 20220713, end: 20220727
  14. NEXIUM [Concomitant]
     Active Substance: ESOMEPRAZOLE MAGNESIUM
     Dosage: 160 MG, QD
     Route: 042
     Dates: end: 20220727
  15. NOXAFIL [Concomitant]
     Active Substance: POSACONAZOLE
     Indication: Prophylaxis
     Dosage: 300 MG, BID
     Route: 048
     Dates: start: 20220629
  16. NOXAFIL [Concomitant]
     Active Substance: POSACONAZOLE
     Dosage: 300 MG, QD
     Route: 048
     Dates: start: 20220630
  17. NOXAFIL [Concomitant]
     Active Substance: POSACONAZOLE
     Dosage: 300 MG
     Route: 042
     Dates: start: 20220629, end: 20220712
  18. NOXAFIL [Concomitant]
     Active Substance: POSACONAZOLE
     Dosage: 300 MG
     Route: 042
     Dates: start: 20220727
  19. SULFAMETHOXAZOLE\TRIMETHOPRIM [Concomitant]
     Active Substance: SULFAMETHOXAZOLE\TRIMETHOPRIM
     Indication: Prophylaxis
     Dosage: 2 DOSAGE FORM
     Route: 048
     Dates: start: 20220629
  20. SULFAMETHOXAZOLE\TRIMETHOPRIM [Concomitant]
     Active Substance: SULFAMETHOXAZOLE\TRIMETHOPRIM
     Dosage: 1 DOSAGE FORM, BID
     Route: 048
     Dates: end: 20220728
  21. HEPA-MERZ [Concomitant]
     Indication: Liver function test increased
     Dosage: 2 G
     Route: 042
     Dates: start: 20220704, end: 20220712
  22. HEPA-MERZ [Concomitant]
     Dosage: UNK (REDUPLICATION)
     Route: 065
  23. HEPA-MERZ [Concomitant]
     Dosage: 2000 MG, QD
     Route: 042
     Dates: end: 20220712
  24. ULTRACET [Concomitant]
     Active Substance: ACETAMINOPHEN\TRAMADOL HYDROCHLORIDE
     Indication: Arthralgia
     Dosage: 2 DOSAGE FORM
     Route: 048
     Dates: start: 20220624, end: 20220712
  25. ALLOPURINOL [Concomitant]
     Active Substance: ALLOPURINOL
     Indication: Prophylaxis
     Dosage: 100 MG, QD
     Route: 048
     Dates: start: 20220624, end: 20220712
  26. LEVOFLOXACIN [Concomitant]
     Active Substance: LEVOFLOXACIN
     Indication: Prophylaxis
     Dosage: 500 MG
     Route: 048
     Dates: start: 20220808, end: 20220809
  27. ALOXI [Concomitant]
     Active Substance: PALONOSETRON HYDROCHLORIDE
     Indication: Prophylaxis
     Dosage: 025 MG
     Route: 042
     Dates: start: 20220808, end: 20220812
  28. DEXAMETHASONE [Concomitant]
     Active Substance: DEXAMETHASONE
     Indication: Prophylaxis
     Dosage: 12 MG
     Route: 042
     Dates: start: 20220701
  29. IDARUBICIN [Concomitant]
     Active Substance: IDARUBICIN
     Indication: Acute myeloid leukaemia
     Dosage: 18.96 MG
     Route: 042
     Dates: start: 20220808, end: 20220809
  30. EXJADE [Concomitant]
     Active Substance: DEFERASIROX
     Indication: Prophylaxis
     Dosage: 360 MG
     Route: 048
     Dates: start: 20220905

REACTIONS (16)
  - Melaena [Recovered/Resolved]
  - Adrenal insufficiency [Not Recovered/Not Resolved]
  - Nausea [Recovered/Resolved with Sequelae]
  - Diarrhoea [Recovered/Resolved]
  - Generalised oedema [Recovered/Resolved]
  - Vomiting [Recovered/Resolved]
  - Nausea [Recovered/Resolved]
  - Pyrexia [Recovered/Resolved]
  - Headache [Recovered/Resolved]
  - Hypotension [Recovered/Resolved with Sequelae]
  - Dyspnoea [Recovered/Resolved]
  - Insomnia [Recovered/Resolved with Sequelae]
  - Pyrexia [Recovered/Resolved with Sequelae]
  - Nausea [Recovered/Resolved with Sequelae]
  - Neutrophil count decreased [Recovered/Resolved with Sequelae]
  - Platelet count decreased [Recovered/Resolved]

NARRATIVE: CASE EVENT DATE: 20220707
